FAERS Safety Report 18920074 (Version 1)
Quarter: 2021Q1

REPORT INFORMATION
  Report Type: Spontaneous
  Country: FR (occurrence: FR)
  Receive Date: 20210222
  Receipt Date: 20210222
  Transmission Date: 20210420
  Serious: Yes (Death)
  Sender: FDA-Public Use
  Company Number: FR-TEVA-2021-FR-1881091

PATIENT
  Age: 76 Year
  Sex: Male
  Weight: 64 kg

DRUGS (12)
  1. EUPANTOL [Concomitant]
     Active Substance: PANTOPRAZOLE SODIUM
     Dosage: 40 MG
     Route: 048
  2. ARAVA [Concomitant]
     Active Substance: LEFLUNOMIDE
     Indication: RHEUMATOID ARTHRITIS
     Dosage: 10 MG
     Route: 048
     Dates: start: 201402
  3. FUROSEMIDE. [Concomitant]
     Active Substance: FUROSEMIDE
     Indication: HYPERTENSION
     Dosage: 80 MG
     Route: 048
  4. TAHOR [Concomitant]
     Active Substance: ATORVASTATIN CALCIUM
     Dosage: 80 MG
     Route: 048
  5. AERIUS [Concomitant]
     Dosage: 5 MG
     Route: 048
  6. ALDACTONE [Concomitant]
     Active Substance: SPIRONOLACTONE
     Indication: HYPERTENSION
     Dosage: 75 MG
     Route: 048
  7. FOSAVANCE [Concomitant]
     Active Substance: ALENDRONATE SODIUM\CHOLECALCIFEROL
     Indication: OSTEOPOROSIS
     Route: 048
  8. TRACLEER [Concomitant]
     Active Substance: BOSENTAN
     Indication: PULMONARY ARTERIAL HYPERTENSION
     Dosage: 250 MG
     Route: 048
     Dates: start: 201212
  9. VENLAFAXINE [Suspect]
     Active Substance: VENLAFAXINE HYDROCHLORIDE
     Indication: DEPRESSION
     Dosage: 25 MG
     Route: 048
  10. PLAVIX [Suspect]
     Active Substance: CLOPIDOGREL BISULFATE
     Indication: DEEP VEIN THROMBOSIS
     Dosage: 75 MG
     Route: 048
  11. REVATIO [Concomitant]
     Active Substance: SILDENAFIL CITRATE
     Indication: PULMONARY ARTERIAL HYPERTENSION
     Dosage: 60 MG
     Route: 048
     Dates: start: 201110
  12. FLOLAN [Suspect]
     Active Substance: EPOPROSTENOL SODIUM
     Indication: PULMONARY ARTERIAL HYPERTENSION
     Dosage: 22NG / KG / MIN
     Route: 042
     Dates: start: 201401

REACTIONS (1)
  - Haemorrhage intracranial [Fatal]
